FAERS Safety Report 6045076-3 (Version None)
Quarter: 2009Q1

REPORT INFORMATION
  Report Type: 
  Country: None (occurrence: None)
  Receive Date: 20090121
  Receipt Date: 20090116
  Transmission Date: 20090719
  Serious: Yes (Death, Other)
  Sender: FDA-Public Use
  Company Number: US-JNJFOC-20090103967

PATIENT
  Age: 62 Year
  Sex: Male

DRUGS (2)
  1. REOPRO [Suspect]
     Indication: ACUTE MYOCARDIAL INFARCTION
     Dosage: ONE BOLUS
  2. ANGIOMAX [Concomitant]
     Indication: ACUTE MYOCARDIAL INFARCTION

REACTIONS (2)
  - DEATH [None]
  - THROMBOSIS IN DEVICE [None]
